FAERS Safety Report 4963967-9 (Version None)
Quarter: 2006Q1

REPORT INFORMATION
  Report Type: 
  Country: None (occurrence: None)
  Receive Date: 20060330
  Receipt Date: 20060322
  Transmission Date: 20060701
  Serious: Yes (Other)
  Sender: FDA-Public Use
  Company Number: 2006040338

PATIENT
  Sex: Male
  Weight: 106.5953 kg

DRUGS (15)
  1. NEURONTIN [Suspect]
     Indication: BACK PAIN
     Dosage: ORAL
     Route: 048
  2. VIAGRA [Suspect]
     Indication: ERECTILE DYSFUNCTION
     Dosage: 50 MG ORAL
     Route: 048
  3. DURAGESIC-100 [Concomitant]
  4. MORPHINE [Concomitant]
  5. ALBUTEROL [Concomitant]
  6. XANAX [Concomitant]
  7. FLOVENT [Concomitant]
  8. FLONASE [Concomitant]
  9. LORTAB [Concomitant]
  10. COZAAR [Concomitant]
  11. LAMICTAL [Concomitant]
  12. ATIVAN [Concomitant]
  13. SEROQUEL [Concomitant]
  14. PREVACID [Concomitant]
  15. CORTICOSTEROIDS [Concomitant]

REACTIONS (13)
  - AMNESIA [None]
  - BONE NEOPLASM MALIGNANT [None]
  - DEMENTIA ALZHEIMER'S TYPE [None]
  - DIABETES MELLITUS [None]
  - DRUG INEFFECTIVE [None]
  - ERECTILE DYSFUNCTION [None]
  - HEADACHE [None]
  - HYPERTENSION [None]
  - HYPOAESTHESIA [None]
  - INTERVERTEBRAL DISC PROTRUSION [None]
  - MIGRAINE [None]
  - PAIN IN EXTREMITY [None]
  - SPINAL CORD NEOPLASM [None]
